FAERS Safety Report 7141876-7 (Version None)
Quarter: 2010Q4

REPORT INFORMATION
  Report Type: 
  Country: None (occurrence: None)
  Receive Date: 20101207
  Receipt Date: 20101202
  Transmission Date: 20110411
  Serious: Yes (Other)
  Sender: FDA-Public Use
  Company Number: BR-ROCHE-745962

PATIENT
  Age: 41 Year
  Sex: Female
  Weight: 50 kg

DRUGS (2)
  1. CLONAZEPAM [Suspect]
     Indication: POST-TRAUMATIC STRESS DISORDER
     Route: 065
     Dates: end: 20100701
  2. CLONAZEPAM [Suspect]
     Route: 065
     Dates: start: 20100101

REACTIONS (5)
  - BURNING SENSATION [None]
  - ERYTHEMA [None]
  - OROPHARYNGEAL DISCOMFORT [None]
  - PANIC DISORDER [None]
  - PRURITUS [None]
